FAERS Safety Report 8584441 (Version 7)
Quarter: 2012Q4

REPORT INFORMATION
  Report Type: 
  Country: US (occurrence: US)
  Receive Date: 20120529
  Receipt Date: 20121226
  Transmission Date: 20130627
  Serious: Yes (Other)
  Sender: FDA-Public Use
  Company Number: US-ALLERGAN-1207166US

PATIENT
  Age: 62 Year
  Sex: Male
  Weight: 90.7 kg

DRUGS (8)
  1. REFRESH OPTIVE [Suspect]
     Indication: DRY EYES
     Dosage: 4 Gtt, bid
     Route: 047
     Dates: start: 20120429
  2. REFRESH OPTIVE [Suspect]
     Dosage: 4 Gtt, bid
     Route: 047
     Dates: start: 20120421, end: 20120422
  3. REFRESH OPTIVE [Suspect]
     Dosage: 4 Gtt, bid
     Route: 047
  4. REFRESH OPTIVE [Suspect]
     Dosage: 4 Gtt, bid
  5. REFRESH OPTIVE [Suspect]
     Dosage: 4 Gtt, bid
     Route: 047
  6. REFRESH OPTIVE [Suspect]
     Dosage: 4 Gtt, bid
     Route: 047
  7. REFRESH PLUS [Concomitant]
     Indication: DRY EYES
     Dosage: 2 Gtt, prn
     Route: 047
  8. SYSTANE [Concomitant]
     Indication: DRY EYES
     Dosage: 2 Gtt, prn
     Route: 047

REACTIONS (3)
  - Conjunctivitis [Recovered/Resolved]
  - Eye discharge [Recovered/Resolved]
  - Ocular hyperaemia [Recovered/Resolved]
